FAERS Safety Report 10920276 (Version 7)
Quarter: 2015Q4

REPORT INFORMATION
  Report Type: Report from Study
  Country: US (occurrence: US)
  Receive Date: 20150317
  Receipt Date: 20151120
  Transmission Date: 20160304
  Serious: Yes (Hospitalization)
  Sender: FDA-Public Use
  Company Number: US-BIOGENIDEC-2015BI031809

PATIENT
  Age: 50 Year
  Sex: Female

DRUGS (3)
  1. TYSABRI [Suspect]
     Active Substance: NATALIZUMAB
     Indication: MULTIPLE SCLEROSIS
     Route: 042
     Dates: start: 20070810, end: 20150117
  2. TYSABRI [Suspect]
     Active Substance: NATALIZUMAB
     Indication: MULTIPLE SCLEROSIS
     Route: 042
  3. AMPYRA [Concomitant]
     Active Substance: DALFAMPRIDINE

REACTIONS (10)
  - Cystostomy [Recovered/Resolved]
  - Infected skin ulcer [Recovered/Resolved]
  - Osteomyelitis [Unknown]
  - Peritonitis [Recovered/Resolved]
  - Sepsis [Recovered/Resolved]
  - Procedural complication [Recovered/Resolved]
  - Bladder catheterisation [Unknown]
  - Pyrexia [Unknown]
  - Device related infection [Not Recovered/Not Resolved]
  - Decubitus ulcer [Recovered/Resolved]

NARRATIVE: CASE EVENT DATE: 20150211
